FAERS Safety Report 16283986 (Version 1)
Quarter: 2019Q2

REPORT INFORMATION
  Report Type: Spontaneous
  Country: US (occurrence: US)
  Receive Date: 20190507
  Receipt Date: 20190507
  Transmission Date: 20190711
  Serious: Yes (Hospitalization, Other)
  Sender: FDA-Public Use
  Company Number: US-GILEAD-2019-0405640

PATIENT
  Age: 77 Year
  Sex: Male

DRUGS (6)
  1. OFATUMUMAB [Concomitant]
     Active Substance: OFATUMUMAB
     Dosage: 2000 MG, Q1WK; DOSES 9-12
     Route: 065
     Dates: start: 2016, end: 2016
  2. CHLORAMBUCIL;OBINUTUZUMAB [Concomitant]
     Indication: B-CELL SMALL LYMPHOCYTIC LYMPHOMA REFRACTORY
     Dosage: UNK; 6 CYCLES
     Dates: start: 2017, end: 2017
  3. ZYDELIG [Suspect]
     Active Substance: IDELALISIB
     Indication: B-CELL SMALL LYMPHOCYTIC LYMPHOMA REFRACTORY
     Dosage: 1 UNK
     Route: 065
     Dates: start: 2016, end: 2016
  4. OFATUMUMAB [Concomitant]
     Active Substance: OFATUMUMAB
     Dosage: 2000 MG, Q1WK; DOSES 2-8
     Route: 065
     Dates: start: 2016, end: 2016
  5. ZYDELIG [Suspect]
     Active Substance: IDELALISIB
     Dosage: 1 DOSAGE FORM, BID
     Route: 065
     Dates: start: 2017, end: 2018
  6. OFATUMUMAB [Concomitant]
     Active Substance: OFATUMUMAB
     Indication: B-CELL LYMPHOMA REFRACTORY
     Dosage: 300 MG, ONCE; 1ST DOSE
     Route: 065
     Dates: start: 2016, end: 2016

REACTIONS (3)
  - Disease progression [Unknown]
  - Pancytopenia [Unknown]
  - Toxic encephalopathy [Recovering/Resolving]

NARRATIVE: CASE EVENT DATE: 2018
